FAERS Safety Report 6291955-1 (Version None)
Quarter: 2009Q3

REPORT INFORMATION
  Report Type: 
  Country: None (occurrence: None)
  Receive Date: 20090729
  Receipt Date: 20090727
  Transmission Date: 20100115
  Serious: Yes (Hospitalization)
  Sender: FDA-Public Use
  Company Number: 2009SP004109

PATIENT
  Age: 38 Year
  Sex: Male

DRUGS (2)
  1. PEG-INTRON [Suspect]
     Indication: HEPATITIS C
     Dosage: 150 MG; QW; SC
     Route: 058
     Dates: start: 20090203
  2. RIBAVIRIN [Suspect]
     Indication: HEPATITIS C
     Dosage: 200 MG; PO
     Route: 048
     Dates: start: 20090203

REACTIONS (1)
  - PULMONARY EMBOLISM [None]
